FAERS Safety Report 10729040 (Version 6)
Quarter: 2015Q3

REPORT INFORMATION
  Report Type: Spontaneous
  Country: US (occurrence: US)
  Receive Date: 20150122
  Receipt Date: 20150907
  Transmission Date: 20151125
  Serious: No
  Sender: FDA-Public Use
  Company Number: US-PFIZER INC-2015025290

PATIENT
  Age: 63 Year
  Sex: Female
  Weight: 132 kg

DRUGS (18)
  1. SUTENT [Suspect]
     Active Substance: SUNITINIB MALATE
     Dosage: 25 MG, DAILY
     Dates: start: 20150310, end: 20150628
  2. FLUOXETINE [Concomitant]
     Active Substance: FLUOXETINE\FLUOXETINE HYDROCHLORIDE
     Dosage: UNK
  3. BABY ASPIRIN [Concomitant]
     Active Substance: ASPIRIN
     Dosage: UNK
  4. FLUVOXAMINE [Concomitant]
     Active Substance: FLUVOXAMINE
     Dosage: 100 MG, 1X/DAY (AT BEDTIME)
  5. IMODIUM [Concomitant]
     Active Substance: LOPERAMIDE HYDROCHLORIDE
     Dosage: UNK
  6. INSULIN PUMP [Concomitant]
     Active Substance: INSULIN NOS
     Dosage: UNK
  7. SUTENT [Suspect]
     Active Substance: SUNITINIB MALATE
     Indication: METASTATIC RENAL CELL CARCINOMA
     Dosage: 37.5 MG, UNK
     Dates: start: 20150108, end: 20150309
  8. NEURONTIN [Concomitant]
     Active Substance: GABAPENTIN
     Dosage: UNK
  9. METOPROLOL [Concomitant]
     Active Substance: METOPROLOL
     Dosage: UNK
  10. TYLENOL [Concomitant]
     Active Substance: ACETAMINOPHEN
     Dosage: UNK
  11. VITAMIN D [Concomitant]
     Active Substance: CHOLECALCIFEROL
     Dosage: UNK
  12. MICARDIS [Concomitant]
     Active Substance: TELMISARTAN
     Dosage: 80 MG, DAILY
  13. ZOFRAN [Concomitant]
     Active Substance: ONDANSETRON HYDROCHLORIDE
     Dosage: UNK
  14. TANZEUM [Concomitant]
     Active Substance: ALBIGLUTIDE
     Indication: DIABETES MELLITUS
     Dosage: UNK, WEEKLY
  15. BIOFREEZE [Concomitant]
     Active Substance: MENTHOL
     Dosage: UNK
  16. GABAPENTIN. [Concomitant]
     Active Substance: GABAPENTIN
     Dosage: UNK
  17. BUPROPION. [Concomitant]
     Active Substance: BUPROPION
     Dosage: 150 MG, DAILY
  18. AMBIEN [Concomitant]
     Active Substance: ZOLPIDEM TARTRATE
     Dosage: UNK

REACTIONS (26)
  - Nausea [Not Recovered/Not Resolved]
  - Pain [Unknown]
  - Oral discomfort [Unknown]
  - Productive cough [Unknown]
  - Pneumonitis [Unknown]
  - Fatigue [Unknown]
  - Insomnia [Unknown]
  - Stomatitis [Unknown]
  - Atypical pneumonia [Unknown]
  - Weight increased [Unknown]
  - Pulmonary mass [Unknown]
  - Abdominal discomfort [Unknown]
  - Diarrhoea [Not Recovered/Not Resolved]
  - Red blood cell count abnormal [Unknown]
  - Hiccups [Unknown]
  - Thyroid disorder [Unknown]
  - Musculoskeletal chest pain [Unknown]
  - Lethargy [Unknown]
  - Decreased appetite [Not Recovered/Not Resolved]
  - Dysgeusia [Unknown]
  - Thinking abnormal [Unknown]
  - Malaise [Unknown]
  - Blood glucose decreased [Unknown]
  - Dyspnoea [Not Recovered/Not Resolved]
  - Weight decreased [Unknown]
  - Asthenia [Unknown]
